FAERS Safety Report 11132262 (Version 2)
Quarter: 2015Q2

REPORT INFORMATION
  Report Type: Spontaneous
  Country: JP (occurrence: JP)
  Receive Date: 20150522
  Receipt Date: 20150611
  Transmission Date: 20150821
  Serious: Yes (Hospitalization)
  Sender: FDA-Public Use
  Company Number: JP-SA-2015SA069089

PATIENT
  Age: 61 Year
  Sex: Female

DRUGS (4)
  1. FLUOROURACIL. [Suspect]
     Active Substance: FLUOROURACIL
     Indication: BREAST CANCER
     Route: 065
     Dates: start: 200702, end: 200704
  2. DOCETAXEL. [Suspect]
     Active Substance: DOCETAXEL
     Indication: BREAST CANCER
     Route: 065
  3. CYCLOPHOSPHAMIDE. [Suspect]
     Active Substance: CYCLOPHOSPHAMIDE
     Indication: BREAST CANCER
     Route: 065
     Dates: start: 200702, end: 200704
  4. EPIRUBICIN [Suspect]
     Active Substance: EPIRUBICIN
     Indication: BREAST CANCER
     Route: 065
     Dates: start: 200702, end: 200704

REACTIONS (22)
  - Acute pulmonary oedema [Unknown]
  - Dilatation ventricular [Recovered/Resolved]
  - Ejection fraction decreased [Recovering/Resolving]
  - QRS axis abnormal [Recovered/Resolved]
  - Ventricular hypokinesia [Unknown]
  - Dyspnoea [Unknown]
  - Pleural effusion [Unknown]
  - Fatigue [Unknown]
  - Electrocardiogram ST segment depression [Not Recovered/Not Resolved]
  - N-terminal prohormone brain natriuretic peptide increased [Unknown]
  - Pulmonary congestion [Unknown]
  - Cardiotoxicity [Unknown]
  - Cardiac failure acute [Recovering/Resolving]
  - Cardiac function test abnormal [Unknown]
  - Weight increased [Unknown]
  - Orthopnoea [Unknown]
  - Cardiomegaly [Recovered/Resolved]
  - Left ventricular end-diastolic pressure increased [Unknown]
  - Endocardial fibrosis [Unknown]
  - Electrocardiogram T wave inversion [Unknown]
  - Oedema peripheral [Unknown]
  - Rales [Unknown]

NARRATIVE: CASE EVENT DATE: 2012
